FAERS Safety Report 5360026-0 (Version None)
Quarter: 2007Q2

REPORT INFORMATION
  Report Type: 
  Country: None (occurrence: None)
  Receive Date: 20070618
  Receipt Date: 20070607
  Transmission Date: 20071010
  Serious: No
  Sender: FDA-Public Use
  Company Number: US-JNJFOC-20070602203

PATIENT
  Sex: Male
  Weight: 69.4 kg

DRUGS (5)
  1. INVEGA [Suspect]
     Indication: ANXIETY
     Route: 048
  2. ZOLOFT [Concomitant]
     Dosage: TAKEN IN THE EVENING
     Route: 048
  3. ZOLOFT [Concomitant]
     Indication: DEPRESSION
     Dosage: TAKEN IN THE MORNING
     Route: 048
  4. CLONAZEPAM [Concomitant]
     Indication: DEPRESSION
     Route: 048
  5. SEROQUEL [Concomitant]
     Indication: DEPRESSION
     Route: 048

REACTIONS (1)
  - SOMNOLENCE [None]
